FAERS Safety Report 6886784 (Version 6)
Quarter: 2013Q1

REPORT INFORMATION
  Report Type: Spontaneous
  Country: BR (occurrence: BR)
  Receive Date: 20090120
  Receipt Date: 20130322
  Transmission Date: 20140127
  Serious: Yes (Other)
  Sender: FDA-Public Use
  Company Number: BR-ABBOTT-09P-020-0498236-00

PATIENT
  Age: 62 None
  Sex: Female
  Weight: 55 kg

DRUGS (24)
  1. NOCTAL [Suspect]
     Indication: DEPRESSION
     Route: 048
     Dates: start: 1984, end: 2008
  2. NOCTAL [Suspect]
     Indication: INSOMNIA
  3. NOCTAL [Suspect]
     Indication: CRYING
     Route: 048
     Dates: start: 1983
  4. CLONAZEPAM [Suspect]
     Indication: PRODUCT USED FOR UNKNOWN INDICATION
  5. LEXOTAN [Concomitant]
     Indication: TACHYCARDIA
     Route: 048
  6. PURAN T4 [Concomitant]
     Indication: THYROID DISORDER
     Route: 048
  7. PURAN T4 [Concomitant]
     Indication: THYROIDECTOMY
  8. HIDANTAL [Concomitant]
     Indication: EPILEPSY
     Route: 048
     Dates: start: 1977
  9. CONJUGATED ESTROGENS [Concomitant]
     Indication: HORMONE REPLACEMENT THERAPY
     Dates: start: 1989
  10. UNKNOWN MEDICATION [Concomitant]
     Indication: OSTEOPOROSIS
  11. ALENDRONATE [Concomitant]
     Indication: OSTEOPOROSIS
     Route: 048
     Dates: start: 2010
  12. PHENOBARBITAL [Concomitant]
     Indication: EPILEPSY
     Route: 048
     Dates: start: 1977
  13. ALMEIDA [Concomitant]
     Indication: GASTROINTESTINAL DISORDER
     Route: 048
     Dates: start: 1985
  14. NORESTIN [Concomitant]
     Indication: HORMONE REPLACEMENT THERAPY
     Route: 048
     Dates: start: 1989
  15. PREMARIN [Concomitant]
     Indication: HORMONE REPLACEMENT THERAPY
     Dosage: 0.620
     Route: 048
     Dates: start: 1989
  16. CALCIUM CARBONATE [Concomitant]
     Indication: OSTEOPOROSIS
     Dosage: 400UI/ 1250MG
     Route: 048
     Dates: start: 2010
  17. VITAMIN D3 [Concomitant]
     Indication: OSTEOPOROSIS
     Route: 048
     Dates: start: 201205
  18. GARDENAL [Concomitant]
     Indication: PRODUCT USED FOR UNKNOWN INDICATION
  19. UNKNOWN DRUG [Concomitant]
     Indication: BONE DISORDER
  20. CANCER HORMONE [Concomitant]
     Indication: NEOPLASM MALIGNANT
  21. UNKNOWN DRUG [Concomitant]
     Indication: BRONCHITIS
  22. HONEY [Concomitant]
     Indication: OSTEOPOROSIS
  23. HONEY [Concomitant]
     Indication: SKIN DISORDER
  24. HONEY [Concomitant]
     Indication: BRONCHITIS

REACTIONS (44)
  - Metastasis [Unknown]
  - Thyroid neoplasm [Recovered/Resolved]
  - Thyroid cancer [Recovered/Resolved]
  - Thyroid cancer [Recovered/Resolved]
  - Tuberculosis [Unknown]
  - Sensation of foreign body [Unknown]
  - Syncope [Unknown]
  - Skeletal injury [Unknown]
  - Alopecia [Recovered/Resolved]
  - Osteoporosis [Recovering/Resolving]
  - Thyroid disorder [Unknown]
  - Dizziness [Recovered/Resolved]
  - Headache [Recovering/Resolving]
  - Muscular weakness [Recovering/Resolving]
  - Somnolence [Unknown]
  - Hepatic steatosis [Not Recovered/Not Resolved]
  - Dyspnoea [Recovering/Resolving]
  - Insomnia [Not Recovered/Not Resolved]
  - Listless [Not Recovered/Not Resolved]
  - Chest injury [Unknown]
  - Bronchiectasis [Unknown]
  - Mass [Unknown]
  - Tachycardia [Unknown]
  - Respiratory tract inflammation [Unknown]
  - Anal inflammation [Unknown]
  - Cystitis [Unknown]
  - Skin atrophy [Unknown]
  - Bronchitis [Unknown]
  - Chest pain [Unknown]
  - Lower respiratory tract infection [Unknown]
  - Weight decreased [Unknown]
  - Neoplasm malignant [Unknown]
  - Hypophagia [Unknown]
  - Iodine deficiency [Unknown]
  - Drug dose omission [Unknown]
  - Emotional disorder [Unknown]
  - Nervousness [Unknown]
  - Pain [Unknown]
  - Pain in extremity [Unknown]
  - Asthma [Unknown]
  - Head discomfort [Unknown]
  - Insomnia [Unknown]
  - Drug ineffective [Unknown]
  - Alopecia [Recovered/Resolved]
